FAERS Safety Report 15571437 (Version 1)
Quarter: 2018Q4

REPORT INFORMATION
  Report Type: Spontaneous
  Country: US (occurrence: US)
  Receive Date: 20181026
  Receipt Date: 20181026
  Transmission Date: 20190205
  Serious: No
  Sender: FDA-Public Use
  Company Number: None

PATIENT
  Age: 69 Year
  Sex: Male

DRUGS (1)
  1. HARVONI [Suspect]
     Active Substance: LEDIPASVIR\SOFOSBUVIR
     Indication: HEPATITIS C
     Dates: start: 201809

REACTIONS (6)
  - Toe amputation [None]
  - Fluid retention [None]
  - Dyspnoea [None]
  - Fatigue [None]
  - Joint injury [None]
  - Urinary incontinence [None]

NARRATIVE: CASE EVENT DATE: 20181025
